FAERS Safety Report 21719902 (Version 1)
Quarter: 2022Q4

REPORT INFORMATION
  Report Type: Other
  Country: US (occurrence: US)
  Receive Date: 20221213
  Receipt Date: 20221213
  Transmission Date: 20230113
  Serious: Yes (Hospitalization, Other)
  Sender: FDA-Public Use
  Company Number: US-HLS-202104381

PATIENT
  Age: 35 Year
  Sex: Male

DRUGS (8)
  1. CLOZAPINE [Suspect]
     Active Substance: CLOZAPINE
     Dosage: UNKNOWN
     Route: 065
  2. HALOPERIDOL [Concomitant]
     Active Substance: HALOPERIDOL
     Dosage: UNKNOWN
     Route: 065
  3. CLONAZEPAM [Concomitant]
     Active Substance: CLONAZEPAM
     Dosage: 1 MG PO THRICE A DAY
     Route: 048
  4. CLONAZEPAM [Concomitant]
     Active Substance: CLONAZEPAM
     Dosage: UNKNOWN
     Route: 065
  5. CHLORPROMAZINE [Concomitant]
     Active Substance: CHLORPROMAZINE
     Dosage: 50 MG PO BID
     Route: 048
  6. Benztropine. [Concomitant]
     Dosage: 1 MG PO TID
     Route: 048
  7. LOXAPINE [Concomitant]
     Active Substance: LOXAPINE
     Dosage: 75MG BID
     Route: 048
  8. VALPROATE [Concomitant]
     Active Substance: VALPROIC ACID
     Dosage: 500 MG PO EVERY NIGHT AT BEDTIME
     Route: 048

REACTIONS (8)
  - Aggression [Recovering/Resolving]
  - Agitation [Recovering/Resolving]
  - Depression [Recovering/Resolving]
  - Extrapyramidal disorder [Unknown]
  - Mania [Recovering/Resolving]
  - Sedation [Recovering/Resolving]
  - Salivary hypersecretion [Unknown]
  - Treatment noncompliance [Unknown]
